FAERS Safety Report 12569284 (Version 2)
Quarter: 2016Q3

REPORT INFORMATION
  Report Type: Spontaneous
  Country: US (occurrence: US)
  Receive Date: 20160719
  Receipt Date: 20160722
  Transmission Date: 20161109
  Serious: Yes (Other)
  Sender: FDA-Public Use
  Company Number: US-TEVA-677741ACC

PATIENT
  Age: 27 Year
  Sex: Female
  Weight: 67.65 kg

DRUGS (1)
  1. PLAN B ONE-STEP [Suspect]
     Active Substance: LEVONORGESTREL
     Indication: POST COITAL CONTRACEPTION
     Dates: start: 20160701, end: 20160701

REACTIONS (6)
  - Vaginal discharge [Not Recovered/Not Resolved]
  - Weight increased [Unknown]
  - Pregnancy after post coital contraception [Unknown]
  - Pain [Not Recovered/Not Resolved]
  - Exposure during pregnancy [Unknown]
  - Muscle spasms [Unknown]

NARRATIVE: CASE EVENT DATE: 20160707
